FAERS Safety Report 13131120 (Version 2)
Quarter: 2017Q2

REPORT INFORMATION
  Report Type: Report from Study
  Country: US (occurrence: US)
  Receive Date: 20170119
  Receipt Date: 20170518
  Transmission Date: 20170830
  Serious: Yes (Hospitalization)
  Sender: FDA-Public Use
  Company Number: US-GILEAD-2017-0253766

PATIENT
  Age: 44 Year
  Sex: Female

DRUGS (2)
  1. AMBRISENTAN [Suspect]
     Active Substance: AMBRISENTAN
     Indication: PRODUCT USED FOR UNKNOWN INDICATION
     Dosage: 5 MG, QD
     Route: 065
  2. ADCIRCA [Concomitant]
     Active Substance: TADALAFIL

REACTIONS (8)
  - Drug dose omission [Unknown]
  - Gastric disorder [Unknown]
  - Hysterectomy [Unknown]
  - Cough [Unknown]
  - Pica [Unknown]
  - Fatigue [Unknown]
  - Anaemia [Unknown]
  - Wheezing [Unknown]

NARRATIVE: CASE EVENT DATE: 201701
